FAERS Safety Report 16624763 (Version 2)
Quarter: 2019Q3

REPORT INFORMATION
  Report Type: Spontaneous
  Country: US (occurrence: US)
  Receive Date: 20190724
  Receipt Date: 20190820
  Transmission Date: 20191004
  Serious: No
  Sender: FDA-Public Use
  Company Number: US-009507513-1907USA012006

PATIENT
  Sex: Male

DRUGS (13)
  1. PROVENTIL [Suspect]
     Active Substance: ALBUTEROL
     Dosage: 2 PUFFS BY MOUTH EVERY 6 HOURS AS NEEDED
     Route: 055
     Dates: start: 2019, end: 2019
  2. PROVENTIL [Suspect]
     Active Substance: ALBUTEROL
     Dosage: UNK
     Route: 055
     Dates: start: 2019, end: 2019
  3. ELIQUIS [Concomitant]
     Active Substance: APIXABAN
  4. SIMVASTATIN. [Concomitant]
     Active Substance: SIMVASTATIN
  5. METOPROLOL. [Concomitant]
     Active Substance: METOPROLOL
     Dosage: UNK
  6. FOLIC ACID. [Concomitant]
     Active Substance: FOLIC ACID
  7. BETAMETHASONE. [Concomitant]
     Active Substance: BETAMETHASONE
  8. ALBUTEROL SULFATE. [Suspect]
     Active Substance: ALBUTEROL SULFATE
     Indication: ALLERGIC COUGH
     Dosage: UNK
     Route: 055
  9. UBIDECARENONE [Concomitant]
     Active Substance: UBIDECARENONE
  10. PROVENTIL [Suspect]
     Active Substance: ALBUTEROL
     Indication: ALLERGIC COUGH
     Dosage: UNK
     Route: 055
     Dates: start: 1999
  11. CYANOCOBALAMIN. [Concomitant]
     Active Substance: CYANOCOBALAMIN
  12. ACETAMINOPHEN. [Concomitant]
     Active Substance: ACETAMINOPHEN
  13. HYDROCHLOROTHIAZIDE. [Concomitant]
     Active Substance: HYDROCHLOROTHIAZIDE

REACTIONS (6)
  - Product quality issue [Unknown]
  - Drug ineffective [Recovered/Resolved]
  - Cough [Recovered/Resolved]
  - Hypersensitivity [Recovered/Resolved]
  - Product leakage [Unknown]
  - Poor quality device used [Unknown]

NARRATIVE: CASE EVENT DATE: 2019
